FAERS Safety Report 4270521-3 (Version None)
Quarter: 2004Q1

REPORT INFORMATION
  Report Type: 
  Country: None (occurrence: None)
  Receive Date: 20040113
  Receipt Date: 20040113
  Transmission Date: 20041129
  Serious: Yes (Other)
  Sender: FDA-Public Use
  Company Number: None

PATIENT
  Age: 43 Year
  Sex: Female
  Weight: 62.5964 kg

DRUGS (2)
  1. VIOXX [Suspect]
     Indication: HYPERSENSITIVITY
     Dates: start: 20030901, end: 20040105
  2. SYNTHROID [Suspect]

REACTIONS (6)
  - COUGH [None]
  - HYPERSENSITIVITY [None]
  - NASAL CONGESTION [None]
  - OROPHARYNGEAL SWELLING [None]
  - URTICARIA [None]
  - WHEEZING [None]
